FAERS Safety Report 5673334-0 (Version None)
Quarter: 2008Q1

REPORT INFORMATION
  Report Type: 
  Country: None (occurrence: None)
  Receive Date: 20080319
  Receipt Date: 20080310
  Transmission Date: 20080703
  Serious: Yes (Hospitalization)
  Sender: FDA-Public Use
  Company Number: GB-ROCHE-552440

PATIENT
  Age: 46 Year
  Sex: Female
  Weight: 98 kg

DRUGS (10)
  1. XENICAL [Suspect]
     Indication: OBESITY
     Route: 048
     Dates: start: 20071212, end: 20080104
  2. LIPITOR [Concomitant]
     Route: 048
  3. OMEPRAZOLE [Concomitant]
     Indication: UNEVALUABLE EVENT
     Route: 048
  4. COAPROVEL [Concomitant]
     Indication: HYPERTENSION
     Route: 048
  5. METFORMIN HCL [Concomitant]
     Route: 048
  6. BISOPROLOL FUMARATE [Concomitant]
     Indication: HYPERTENSION
     Route: 048
  7. ASPIRIN [Concomitant]
     Route: 048
  8. PLAVIX [Concomitant]
     Route: 048
  9. OMACOR [Concomitant]
     Dosage: THIS IS AN OIL SUPPLEMENT
     Route: 048
  10. PROZAC [Concomitant]
     Indication: DEPRESSION
     Route: 048

REACTIONS (2)
  - CHEST PAIN [None]
  - PALPITATIONS [None]
